FAERS Safety Report 11675970 (Version 1)
Quarter: 2015Q4

REPORT INFORMATION
  Report Type: Spontaneous
  Country: JP (occurrence: JP)
  Receive Date: 20151028
  Receipt Date: 20151028
  Transmission Date: 20160304
  Serious: Yes (Hospitalization, Other)
  Sender: FDA-Public Use
  Company Number: JP-JNJFOC-20151015102

PATIENT
  Age: 63 Year
  Sex: Male

DRUGS (2)
  1. RIUP X5 [Suspect]
     Active Substance: MINOXIDIL
     Route: 061
  2. RIUP X5 [Suspect]
     Active Substance: MINOXIDIL
     Indication: PRODUCT USED FOR UNKNOWN INDICATION
     Route: 061

REACTIONS (1)
  - Pneumonia [Not Recovered/Not Resolved]
